FAERS Safety Report 6589909-0 (Version None)
Quarter: 2010Q1

REPORT INFORMATION
  Report Type: 
  Country: None (occurrence: None)
  Receive Date: 20100212
  Receipt Date: 20100127
  Transmission Date: 20100710
  Serious: Yes (Other)
  Sender: FDA-Public Use
  Company Number: 2009-4555

PATIENT
  Age: 56 Year
  Sex: Female
  Weight: 63.5 kg

DRUGS (1)
  1. DYSPORT [Suspect]
     Indication: SKIN WRINKLING
     Dosage: 62.5 UNITS, SINGLE CYCLE, INTRAMUSCULAR
     Route: 030
     Dates: start: 20091002, end: 20091002

REACTIONS (2)
  - EYELID PTOSIS [None]
  - FATIGUE [None]
